FAERS Safety Report 19678809 (Version 1)
Quarter: 2021Q3

REPORT INFORMATION
  Report Type: Spontaneous
  Country: US (occurrence: US)
  Receive Date: 20210809
  Receipt Date: 20210809
  Transmission Date: 20211014
  Serious: No
  Sender: FDA-Public Use
  Company Number: None

PATIENT
  Age: 40 Year
  Sex: Female
  Weight: 73.6 kg

DRUGS (4)
  1. CINVANTI [Concomitant]
     Active Substance: APREPITANT
     Dates: start: 20210416
  2. FAMOTIDINE. [Concomitant]
     Active Substance: FAMOTIDINE
     Dates: start: 20210416
  3. DEXAMETHASONE. [Suspect]
     Active Substance: DEXAMETHASONE
     Indication: PREMEDICATION
     Dosage: ?          OTHER FREQUENCY:EVERY 28 DAYS;?
     Route: 041
     Dates: start: 20210416
  4. GRANISETRON [Concomitant]
     Active Substance: GRANISETRON
     Dates: start: 20210416

REACTIONS (2)
  - Throat irritation [None]
  - Throat tightness [None]

NARRATIVE: CASE EVENT DATE: 20210416
